FAERS Safety Report 17239364 (Version 1)
Quarter: 2020Q1

REPORT INFORMATION
  Report Type: Spontaneous
  Country: KR (occurrence: KR)
  Receive Date: 20200106
  Receipt Date: 20200106
  Transmission Date: 20200409
  Serious: Yes (Hospitalization)
  Sender: FDA-Public Use
  Company Number: KR-BIOCRYST PHARMACEUTICALS, INC.-2019BCR00248

PATIENT
  Sex: Female

DRUGS (2)
  1. PERAMIFLU [Suspect]
     Active Substance: PERAMIVIR
     Indication: INFLUENZA
     Dosage: UNK UNK, ONCE
     Route: 042
     Dates: start: 20191223, end: 20191223
  2. SAERONAMIN [Concomitant]
     Dosage: UNK
     Dates: start: 20191223, end: 20191223

REACTIONS (2)
  - Syncope [Recovered/Resolved]
  - Amnesia [Recovered/Resolved]

NARRATIVE: CASE EVENT DATE: 20191223
